FAERS Safety Report 22059156 (Version 1)
Quarter: 2023Q1

REPORT INFORMATION
  Report Type: Spontaneous
  Country: US (occurrence: None)
  Receive Date: 20230302
  Receipt Date: 20230302
  Transmission Date: 20230418
  Serious: Yes (Other)
  Sender: FDA-Public Use
  Company Number: None

PATIENT
  Age: 25 Year
  Sex: Male
  Weight: 76.5 kg

DRUGS (4)
  1. CANNABIDIOL\HERBALS\TETRAHYDROCANNABINOL UNSPECIFIED [Suspect]
     Active Substance: CANNABIDIOL\HERBALS\TETRAHYDROCANNABINOL UNSPECIFIED
     Indication: Product used for unknown indication
     Dosage: OTHER QUANTITY : 4 OUNCE(S);?FREQUENCY : AS NEEDED;?
     Route: 048
     Dates: start: 20230301, end: 20230301
  2. PENICILLIN [Concomitant]
     Active Substance: PENICILLIN
  3. HYDROCODONE [Concomitant]
     Active Substance: HYDROCODONE
  4. IBUPROFEN [Concomitant]
     Active Substance: IBUPROFEN

REACTIONS (5)
  - Expired product administered [None]
  - Hyperhidrosis [None]
  - Vomiting [None]
  - Diarrhoea [None]
  - Gastric disorder [None]

NARRATIVE: CASE EVENT DATE: 20230301
